FAERS Safety Report 5564281-3 (Version None)
Quarter: 2007Q4

REPORT INFORMATION
  Report Type: 
  Country: None (occurrence: None)
  Receive Date: 20071214
  Receipt Date: 20071214
  Transmission Date: 20080405
  Serious: Yes (Other)
  Sender: FDA-Public Use
  Company Number: None

PATIENT
  Age: 3 Month
  Sex: Female
  Weight: 2.25 kg

DRUGS (4)
  1. ATROPINE [Suspect]
     Dosage: 1 DROP IN EACH EYE EVERY EVENING OPHTHALMIC
     Route: 047
     Dates: start: 20071125, end: 20071211
  2. ALBUTEROL -NEBULIZED- [Concomitant]
  3. CYCLOPENTOLATE/PHENYLEPHRINE [Concomitant]
  4. PROPARACAINE HCL [Concomitant]

REACTIONS (5)
  - BODY TEMPERATURE INCREASED [None]
  - FOOD INTOLERANCE [None]
  - HEART RATE INCREASED [None]
  - NO THERAPEUTIC RESPONSE [None]
  - TREMOR [None]
